FAERS Safety Report 4871776-4 (Version None)
Quarter: 2006Q1

REPORT INFORMATION
  Report Type: 
  Country: None (occurrence: None)
  Receive Date: 20060104
  Receipt Date: 20050607
  Transmission Date: 20060701
  Serious: Yes (Hospitalization, Other)
  Sender: FDA-Public Use
  Company Number: PHEH2005US06429

PATIENT
  Age: 71 Year
  Sex: Female

DRUGS (8)
  1. DIOVAN [Suspect]
     Indication: HYPERTENSION
     Dosage: 160 MG, QD
     Route: 048
     Dates: start: 20050113, end: 20050201
  2. DIOVAN [Suspect]
     Dosage: 320 MG, QD
     Route: 048
     Dates: start: 20050201, end: 20050802
  3. DIOVAN [Suspect]
     Dosage: 80 MG, QD
     Route: 048
     Dates: start: 20051227
  4. AMARYL [Concomitant]
  5. NORVASK [Concomitant]
  6. LABETALOL [Concomitant]
  7. LOZOL [Concomitant]
  8. PRILOSEC [Concomitant]

REACTIONS (8)
  - BLOOD CREATININE ABNORMAL [None]
  - CLOSTRIDIAL INFECTION [None]
  - DIVERTICULITIS [None]
  - FATIGUE [None]
  - HERPES ZOSTER [None]
  - HYPOAESTHESIA [None]
  - MUSCLE SPASMS [None]
  - RENAL IMPAIRMENT [None]
